FAERS Safety Report 15375152 (Version 1)
Quarter: 2018Q3

REPORT INFORMATION
  Report Type: Spontaneous
  Country: US (occurrence: US)
  Receive Date: 20180912
  Receipt Date: 20180912
  Transmission Date: 20181010
  Serious: No
  Sender: FDA-Public Use
  Company Number: US-GLAXOSMITHKLINE-US2018161945

PATIENT
  Age: 40 Year
  Sex: Female

DRUGS (1)
  1. TRANSDERM SCOP [Suspect]
     Active Substance: SCOPOLAMINE
     Indication: NAUSEA
     Dosage: UNK

REACTIONS (5)
  - Off label use [Unknown]
  - Somnolence [Unknown]
  - Product administered at inappropriate site [Unknown]
  - Product storage error [Unknown]
  - Fatigue [Unknown]
